FAERS Safety Report 4489241-5 (Version None)
Quarter: 2004Q4

REPORT INFORMATION
  Report Type: 
  Country: None (occurrence: None)
  Receive Date: 20041026
  Receipt Date: 20041014
  Transmission Date: 20050328
  Serious: No
  Sender: FDA-Public Use
  Company Number: 04H-161-0277612-00

PATIENT

DRUGS (5)
  1. HALOTHANE [Suspect]
     Indication: ANAESTHESIA
     Dosage: 6%, INHALATION
     Route: 055
  2. VECURONIUM [Concomitant]
  3. NEOSTIMGINE [Concomitant]
  4. MEPERDINE [Concomitant]
  5. CEFAZOLIN [Concomitant]

REACTIONS (1)
  - URINARY RETENTION POSTOPERATIVE [None]
